FAERS Safety Report 4992879-X (Version None)
Quarter: 2006Q1

REPORT INFORMATION
  Report Type: 
  Country: None (occurrence: None)
  Receive Date: 20060315
  Receipt Date: 20060120
  Transmission Date: 20060701
  Serious: No
  Sender: FDA-Public Use
  Company Number: 2006RL000023

PATIENT
  Age: 65 Year
  Sex: Male
  Weight: 104.3273 kg

DRUGS (16)
  1. OMACOR [Suspect]
     Indication: BLOOD TRIGLYCERIDES INCREASED
     Dosage: 4 GM;QD;PO
     Route: 048
     Dates: start: 20060106
  2. SYNTHROID [Suspect]
     Indication: DRUG USE FOR UNKNOWN INDICATION
     Dates: start: 20060106, end: 20060101
  3. ALDACTONE [Concomitant]
  4. ALTACE [Concomitant]
  5. ATENOLOL [Concomitant]
  6. BYETTA [Concomitant]
  7. GLYBURIDE [Concomitant]
  8. ZYLOPRIM [Concomitant]
  9. WARFARIN SODIUM [Concomitant]
  10. TRICOR [Concomitant]
  11. IMDUR [Concomitant]
  12. LANOXIN [Concomitant]
  13. LASIX [Concomitant]
  14. LIPITOR [Concomitant]
  15. METFORMIN [Concomitant]
  16. FOLTX [Concomitant]

REACTIONS (3)
  - BLOOD GLUCOSE INCREASED [None]
  - OEDEMA [None]
  - WEIGHT INCREASED [None]
